FAERS Safety Report 15715127 (Version 2)
Quarter: 2019Q1

REPORT INFORMATION
  Report Type: Spontaneous
  Country: CZ (occurrence: CZ)
  Receive Date: 20181212
  Receipt Date: 20190115
  Transmission Date: 20190417
  Serious: Yes (Hospitalization, Other)
  Sender: FDA-Public Use
  Company Number: CZ-PFIZER INC-2018505253

PATIENT
  Age: 60 Year
  Sex: Female
  Weight: 67 kg

DRUGS (5)
  1. SUTENT [Suspect]
     Active Substance: SUNITINIB MALATE
     Indication: RENAL CANCER
     Dosage: 50 MG, 1X/DAY, IN THE MORNING
     Route: 048
     Dates: start: 20181112, end: 20181121
  2. MEDORISPER [Concomitant]
     Active Substance: RISPERIDONE
     Dosage: 0.5 MG, 2X/DAY, ONCE IN THE MORNING, ONCE IN THE EVENING
  3. HELICID [OMEPRAZOLE] [Concomitant]
     Dosage: 20 MG, 1X/DAY, IN THE MORNING
  4. FRAXIPARINE FORTE [Concomitant]
     Dosage: 0.6 ML, AT 6:00 AM
     Route: 058
  5. MILURIT [Concomitant]
     Active Substance: ALLOPURINOL
     Dosage: 100 MG, 1X/DAY, IN THE MORNING

REACTIONS (14)
  - Decreased appetite [Unknown]
  - Infection [Recovering/Resolving]
  - Liver disorder [Recovering/Resolving]
  - Fatigue [Unknown]
  - Pyrexia [Recovered/Resolved]
  - Hepatic enzyme increased [Unknown]
  - Asthenia [Unknown]
  - Blood test abnormal [Unknown]
  - C-reactive protein abnormal [Unknown]
  - Headache [Unknown]
  - Immunosuppression [Recovering/Resolving]
  - Erythema [Unknown]
  - Nausea [Unknown]
  - Eye pain [Unknown]

NARRATIVE: CASE EVENT DATE: 201811
